FAERS Safety Report 21798860 (Version 1)
Quarter: 2022Q4

REPORT INFORMATION
  Report Type: Spontaneous
  Country: US (occurrence: None)
  Receive Date: 20221229
  Receipt Date: 20221229
  Transmission Date: 20230113
  Serious: Yes (Hospitalization)
  Sender: FDA-Public Use
  Company Number: None

PATIENT
  Sex: Female

DRUGS (1)
  1. NEULASTA [Suspect]
     Active Substance: PEGFILGRASTIM
     Indication: Hepatoblastoma
     Dosage: OTHER FREQUENCY : ONCE EVERY 14 DAYS;?
     Route: 058
     Dates: start: 20221118

REACTIONS (2)
  - Vomiting [None]
  - Diarrhoea [None]
